FAERS Safety Report 17152394 (Version 2)
Quarter: 2019Q4

REPORT INFORMATION
  Report Type: Spontaneous
  Country: NL (occurrence: NO)
  Receive Date: 20191213
  Receipt Date: 20191219
  Transmission Date: 20200122
  Serious: Yes (Other)
  Sender: FDA-Public Use
  Company Number: NO-BAYER-2019-225069

PATIENT
  Age: 25 Year
  Sex: Female
  Weight: 56 kg

DRUGS (3)
  1. MIRENA [Suspect]
     Active Substance: LEVONORGESTREL
     Indication: CONTRACEPTION
     Dosage: 1 DF, QD
     Dates: start: 20160830, end: 20180424
  2. MIRENA [Suspect]
     Active Substance: LEVONORGESTREL
     Indication: CONTRACEPTION
  3. VITAMIN D [VITAMIN D NOS] [Concomitant]
     Active Substance: VITAMIN D NOS

REACTIONS (8)
  - Mental disorder [Recovered/Resolved]
  - Depression [Unknown]
  - Uterine cyst [Unknown]
  - Weight increased [Recovered/Resolved]
  - Skin disorder [Recovered/Resolved]
  - Metrorrhagia [Unknown]
  - Menstruation irregular [Unknown]
  - Appetite disorder [Unknown]

NARRATIVE: CASE EVENT DATE: 20170901
